FAERS Safety Report 18784047 (Version 1)
Quarter: 2021Q1

REPORT INFORMATION
  Report Type: Spontaneous
  Country: GB (occurrence: GB)
  Receive Date: 20210125
  Receipt Date: 20210125
  Transmission Date: 20210419
  Serious: Yes (Life-Threatening, Hospitalization, Disabling)
  Sender: FDA-Public Use
  Company Number: GB-PFIZER INC-2021053709

PATIENT
  Age: 76 Year
  Sex: Female
  Weight: 60 kg

DRUGS (8)
  1. DENOSUMAB [Concomitant]
     Active Substance: DENOSUMAB
     Indication: ILL-DEFINED DISORDER
  2. DIAZEPAM. [Concomitant]
     Active Substance: DIAZEPAM
     Indication: ILL-DEFINED DISORDER
  3. TOLTERODINE [Concomitant]
     Active Substance: TOLTERODINE
     Indication: ILL-DEFINED DISORDER
  4. PREGABALIN. [Concomitant]
     Active Substance: PREGABALIN
     Indication: ILL-DEFINED DISORDER
  5. PALBOCICLIB [Suspect]
     Active Substance: PALBOCICLIB
     Indication: BREAST CANCER
     Dosage: 125MG
     Route: 048
     Dates: start: 20200824, end: 20201228
  6. FULVESTRANT. [Concomitant]
     Active Substance: FULVESTRANT
     Indication: ILL-DEFINED DISORDER
  7. IBUPROFEN. [Concomitant]
     Active Substance: IBUPROFEN
     Indication: ILL-DEFINED DISORDER
  8. OMEPRAZOL [Concomitant]
     Active Substance: OMEPRAZOLE
     Indication: ILL-DEFINED DISORDER

REACTIONS (1)
  - Acute interstitial pneumonitis [Not Recovered/Not Resolved]

NARRATIVE: CASE EVENT DATE: 20201223
